FAERS Safety Report 14834988 (Version 5)
Quarter: 2019Q3

REPORT INFORMATION
  Report Type: Spontaneous
  Country: US (occurrence: US)
  Receive Date: 20180501
  Receipt Date: 20190808
  Transmission Date: 20191004
  Serious: Yes (Hospitalization)
  Sender: FDA-Public Use
  Company Number: US-VIFOR (INTERNATIONAL) INC.-VIT-2018-03957

PATIENT
  Age: 80 Year
  Sex: Male

DRUGS (19)
  1. VELTASSA [Suspect]
     Active Substance: PATIROMER
     Indication: PROTEINURIA
  2. GLIPIZIDE. [Concomitant]
     Active Substance: GLIPIZIDE
  3. METFORMIN HCL [Concomitant]
     Active Substance: METFORMIN HYDROCHLORIDE
  4. VELTASSA [Suspect]
     Active Substance: PATIROMER
     Indication: DIABETES MELLITUS
     Route: 048
     Dates: start: 20180127
  5. FUROSEMIDE. [Concomitant]
     Active Substance: FUROSEMIDE
  6. GLUCOPHAGE [Concomitant]
     Active Substance: METFORMIN HYDROCHLORIDE
  7. SODIUM BICARBONATE. [Concomitant]
     Active Substance: SODIUM BICARBONATE
  8. AMLODIPINE BESYLATE. [Concomitant]
     Active Substance: AMLODIPINE BESYLATE
  9. CARVEDILOL. [Concomitant]
     Active Substance: CARVEDILOL
  10. LANTUS SOLOSTAR [Concomitant]
     Active Substance: INSULIN GLARGINE
  11. SIMVASTATIN. [Concomitant]
     Active Substance: SIMVASTATIN
  12. VELTASSA [Suspect]
     Active Substance: PATIROMER
     Indication: CHRONIC KIDNEY DISEASE
  13. GENERLAC [Concomitant]
     Active Substance: LACTULOSE
  14. LISINOPRIL. [Concomitant]
     Active Substance: LISINOPRIL
  15. VELTASSA [Suspect]
     Active Substance: PATIROMER
     Indication: DIABETIC NEPHROPATHY
  16. VELTASSA [Suspect]
     Active Substance: PATIROMER
     Indication: MALAISE
  17. VELTASSA [Suspect]
     Active Substance: PATIROMER
     Indication: CELLULITIS
  18. JANUVIA [Concomitant]
     Active Substance: SITAGLIPTIN PHOSPHATE
  19. VITAMIN D3 [Concomitant]
     Active Substance: CHOLECALCIFEROL

REACTIONS (5)
  - Product dose omission [Unknown]
  - Hospitalisation [Unknown]
  - Off label use [Unknown]
  - Treatment noncompliance [Unknown]
  - Pneumonia [Unknown]

NARRATIVE: CASE EVENT DATE: 2018
